FAERS Safety Report 5110737-7 (Version None)
Quarter: 2006Q3

REPORT INFORMATION
  Report Type: 
  Country: None (occurrence: None)
  Receive Date: 20060731
  Receipt Date: 20060612
  Transmission Date: 20061208
  Serious: No
  Sender: FDA-Public Use
  Company Number: 2006PV015463

PATIENT
  Age: 61 Year
  Sex: Female
  Weight: 113.3993 kg

DRUGS (3)
  1. BYETTA [Suspect]
     Indication: DIABETES MELLITUS NON-INSULIN-DEPENDENT
     Dosage: 5 MCG;BID;SC
     Route: 058
     Dates: start: 20060406
  2. METFORMIN HCL [Concomitant]
  3. AMARYL [Concomitant]

REACTIONS (3)
  - ABDOMINAL DISCOMFORT [None]
  - BACK PAIN [None]
  - CHANGE OF BOWEL HABIT [None]
